FAERS Safety Report 5694385-6 (Version None)
Quarter: 2008Q2

REPORT INFORMATION
  Report Type: 
  Country: None (occurrence: None)
  Receive Date: 20080402
  Receipt Date: 20080327
  Transmission Date: 20081010
  Serious: Yes (Hospitalization)
  Sender: FDA-Public Use
  Company Number: 920#8#2008-00004

PATIENT
  Age: 88 Year
  Sex: Female

DRUGS (1)
  1. NIFEDIPINE [Suspect]
     Indication: HYPERTENSION

REACTIONS (4)
  - BEZOAR [None]
  - COLONIC OBSTRUCTION [None]
  - FAECAL VOMITING [None]
  - FLATULENCE [None]
